FAERS Safety Report 11281975 (Version 1)
Quarter: 2015Q3

REPORT INFORMATION
  Report Type: Spontaneous
  Country: GB (occurrence: GB)
  Receive Date: 20150718
  Receipt Date: 20150718
  Transmission Date: 20151125
  Serious: Yes (Hospitalization)
  Sender: FDA-Public Use
  Company Number: GB-AUROBINDO-AUR-APL-2015-06307

PATIENT
  Age: 38 Year
  Sex: Female
  Weight: 70 kg

DRUGS (2)
  1. METRONIDAZOLE. [Suspect]
     Active Substance: METRONIDAZOLE
     Indication: TOOTH ABSCESS
     Dosage: 500 MG
     Route: 048
     Dates: start: 20150622, end: 20150622
  2. AMOXYCILLIN [Concomitant]
     Active Substance: AMOXICILLIN

REACTIONS (5)
  - Cerebellar syndrome [Recovered/Resolved]
  - Vomiting [Recovered/Resolved]
  - Ataxia [Recovered/Resolved]
  - Dysarthria [Recovered/Resolved]
  - Abasia [Recovered/Resolved]

NARRATIVE: CASE EVENT DATE: 20150622
